FAERS Safety Report 9337636 (Version 1)
Quarter: 2013Q2

REPORT INFORMATION
  Report Type: Spontaneous
  Country: US (occurrence: US)
  Receive Date: 20130607
  Receipt Date: 20130607
  Transmission Date: 20140414
  Serious: Yes (Death)
  Sender: FDA-Public Use
  Company Number: CHPA2013US009488

PATIENT
  Age: 91 Year
  Sex: Female

DRUGS (2)
  1. MAALOX UNKNOWN [Suspect]
     Indication: DYSPEPSIA
     Dosage: 6 TSP, QD PRN
     Route: 048
  2. MAALOX UNKNOWN [Suspect]
     Indication: DYSPEPSIA

REACTIONS (1)
  - Cardiac disorder [Fatal]
